FAERS Safety Report 12808322 (Version 1)
Quarter: 2016Q4

REPORT INFORMATION
  Report Type: Spontaneous
  Country: US (occurrence: US)
  Receive Date: 20161004
  Receipt Date: 20161004
  Transmission Date: 20170207
  Serious: Yes (Hospitalization, Other)
  Sender: FDA-Public Use
  Company Number: US-009507513-1107USA02803

PATIENT
  Sex: Female
  Weight: 68.04 kg

DRUGS (6)
  1. FOSAMAX PLUS D [Suspect]
     Active Substance: ALENDRONATE SODIUM\CHOLECALCIFEROL
     Indication: OSTEOPENIA
  2. FOSAMAX [Suspect]
     Active Substance: ALENDRONATE SODIUM
     Dosage: UNK UNK, UNKNOWN
     Route: 048
     Dates: end: 200412
  3. FOSAMAX [Suspect]
     Active Substance: ALENDRONATE SODIUM
     Indication: OSTEOPOROSIS
     Dosage: 70 MG, QW
     Route: 048
     Dates: start: 199909, end: 201003
  4. FOSAMAX [Suspect]
     Active Substance: ALENDRONATE SODIUM
     Indication: OSTEOPENIA
     Dosage: UNK UNK, UNKNOWN
     Route: 048
     Dates: end: 20031003
  5. ALENDRONATE SODIUM. [Suspect]
     Active Substance: ALENDRONATE SODIUM
     Indication: OSTEOPOROSIS
     Dosage: 70 MG, QW
     Route: 048
     Dates: start: 200808, end: 200912
  6. FOSAMAX PLUS D [Suspect]
     Active Substance: ALENDRONATE SODIUM\CHOLECALCIFEROL
     Indication: OSTEOPOROSIS
     Dosage: 70MG/2800IU, QW
     Route: 048
     Dates: start: 200609, end: 200805

REACTIONS (42)
  - Diverticulum [Unknown]
  - Femur fracture [Unknown]
  - Muscle strain [Unknown]
  - Pain in extremity [Not Recovered/Not Resolved]
  - Ligament sprain [Unknown]
  - Fall [Unknown]
  - Oedema peripheral [Unknown]
  - Upper respiratory tract infection [Unknown]
  - Blood cholesterol increased [Unknown]
  - Anaemia postoperative [Unknown]
  - Osteoarthritis [Unknown]
  - Atrial tachycardia [Unknown]
  - Fall [Unknown]
  - Incisional drainage [Unknown]
  - Anxiety disorder [Unknown]
  - Foot fracture [Unknown]
  - Fall [Unknown]
  - Chest pain [Unknown]
  - Gastrooesophageal reflux disease [Unknown]
  - Abdominal pain [Unknown]
  - Lipoma [Unknown]
  - Intervertebral disc degeneration [Unknown]
  - Chest pain [Unknown]
  - Contusion [Unknown]
  - Urinary tract infection [Unknown]
  - Fibula fracture [Unknown]
  - Back injury [Unknown]
  - Exostosis [Unknown]
  - Gingival disorder [Unknown]
  - Muscle strain [Unknown]
  - Palpitations [Unknown]
  - Palpitations [Unknown]
  - Rectal polyp [Unknown]
  - Inguinal hernia [Unknown]
  - Upper limb fracture [Unknown]
  - Hyperlipidaemia [Unknown]
  - Osteoarthritis [Unknown]
  - Varicose vein [Unknown]
  - Cardiomegaly [Unknown]
  - Lower limb fracture [Unknown]
  - Pain in extremity [Unknown]
  - Supraventricular tachycardia [Recovered/Resolved]

NARRATIVE: CASE EVENT DATE: 2001
